FAERS Safety Report 9448228 (Version 1)
Quarter: 2013Q3

REPORT INFORMATION
  Report Type: Spontaneous
  Country: US (occurrence: US)
  Receive Date: 20130808
  Receipt Date: 20130808
  Transmission Date: 20140515
  Serious: Yes (Other)
  Sender: FDA-Public Use
  Company Number: US-BAYER-2013-094137

PATIENT
  Sex: Male

DRUGS (1)
  1. STIVARGA [Suspect]
     Dosage: DAILY DOSE 160 MG

REACTIONS (2)
  - Confusional state [None]
  - Posterior reversible encephalopathy syndrome [None]
